FAERS Safety Report 5802828-X (Version None)
Quarter: 2008Q3

REPORT INFORMATION
  Report Type: 
  Country: None (occurrence: None)
  Receive Date: 20080708
  Receipt Date: 20080630
  Transmission Date: 20090109
  Serious: Yes (Hospitalization, Other)
  Sender: FDA-Public Use
  Company Number: FR-AMGEN-UK283735

PATIENT
  Sex: Male

DRUGS (7)
  1. PANITUMUMAB [Suspect]
     Indication: SQUAMOUS CELL CARCINOMA
     Route: 042
     Dates: start: 20080408
  2. AVLOCARDYL [Concomitant]
  3. OMEPRAZOLE [Concomitant]
  4. NITRODERM [Concomitant]
  5. LEVEMIR [Concomitant]
  6. DURAGESIC-100 [Concomitant]
  7. TPN [Concomitant]

REACTIONS (2)
  - FEBRILE BONE MARROW APLASIA [None]
  - NEUTROPENIC SEPSIS [None]
